FAERS Safety Report 20072677 (Version 3)
Quarter: 2022Q1

REPORT INFORMATION
  Report Type: Report from Study
  Country: AU (occurrence: AU)
  Receive Date: 20211116
  Receipt Date: 20220120
  Transmission Date: 20220424
  Serious: Yes (Hospitalization)
  Sender: FDA-Public Use
  Company Number: AU-ABBVIE-21K-008-4145405-00

PATIENT
  Sex: Male

DRUGS (2)
  1. CARBIDOPA\LEVODOPA [Suspect]
     Active Substance: CARBIDOPA\LEVODOPA
     Indication: Product used for unknown indication
     Dosage: 100ML GEL CASSETTE
     Route: 050
     Dates: start: 20171013
  2. CARBIDOPA\LEVODOPA [Suspect]
     Active Substance: CARBIDOPA\LEVODOPA

REACTIONS (11)
  - Hospitalisation [Unknown]
  - COVID-19 [Unknown]
  - Confusional state [Unknown]
  - General physical health deterioration [Unknown]
  - Loss of personal independence in daily activities [Unknown]
  - Fall [Recovered/Resolved]
  - Agitation [Unknown]
  - Impulsive behaviour [Unknown]
  - Weight decreased [Unknown]
  - Decreased appetite [Unknown]
  - Tremor [Unknown]
